FAERS Safety Report 7606937-4 (Version None)
Quarter: 2011Q3

REPORT INFORMATION
  Report Type: 
  Country: None (occurrence: None)
  Receive Date: 20110706
  Receipt Date: 20110623
  Transmission Date: 20111222
  Serious: Yes (Other)
  Sender: FDA-Public Use
  Company Number: AUR-APL-2011-03770

PATIENT
  Age: 71 Year
  Sex: Male

DRUGS (3)
  1. SIMVASTATIN [Suspect]
     Indication: PRODUCT USED FOR UNKNOWN INDICATION
     Dosage: 80 MG, ORAL
     Route: 048
     Dates: end: 20110101
  2. LIPITOR (ATORVASTATI CALCIUM) [Concomitant]
     Indication: PRODUCT USED FOR UNKNOWN INDICATION
     Dosage: ORAL
     Route: 048
  3. AMOXICILLIN [Suspect]
     Indication: SURGERY
     Dosage: 875 MG, ORAL
     Route: 048
     Dates: start: 20110401

REACTIONS (4)
  - GAIT DISTURBANCE [None]
  - DRUG INTERACTION [None]
  - SURGERY [None]
  - MUSCLE INJURY [None]
